FAERS Safety Report 9163187 (Version 1)
Quarter: 2013Q1

REPORT INFORMATION
  Report Type: Spontaneous
  Country: US (occurrence: None)
  Receive Date: 20130313
  Receipt Date: 20130313
  Transmission Date: 20140127
  Serious: Yes (Hospitalization)
  Sender: FDA-Public Use
  Company Number: None

PATIENT
  Age: 46 Year
  Sex: Female
  Weight: 74.84 kg

DRUGS (1)
  1. OMNIPAQUE [Suspect]
     Indication: ABDOMINAL PAIN
     Dosage: 100CC 3CC IV BOLUS
     Route: 040
     Dates: start: 20130307, end: 20130307

REACTIONS (4)
  - Sneezing [None]
  - Dysphagia [None]
  - Dysphonia [None]
  - Lip swelling [None]
